FAERS Safety Report 10264767 (Version 1)
Quarter: 2014Q2

REPORT INFORMATION
  Report Type: Spontaneous
  Country: US (occurrence: US)
  Receive Date: 20140627
  Receipt Date: 20140627
  Transmission Date: 20141212
  Serious: No
  Sender: FDA-Public Use
  Company Number: US-SHIRE-US201403013

PATIENT
  Age: 39 Year
  Sex: Female

DRUGS (7)
  1. VPRIV [Suspect]
     Indication: GAUCHER^S DISEASE
     Dosage: UNK (400U/VIAL), UNKNOWN
     Route: 041
     Dates: start: 20140225
  2. ATENOLOL [Concomitant]
     Indication: HYPERTENSION
     Dosage: 50 MG, 1X/DAY:QD
     Route: 048
  3. SYNTHROID [Concomitant]
     Indication: PRODUCT USED FOR UNKNOWN INDICATION
     Dosage: 50 ?G, 1X/DAY:QD
     Route: 048
  4. PROLIA [Concomitant]
     Indication: PRODUCT USED FOR UNKNOWN INDICATION
     Dosage: 50 MG, OTHER (EVERY SIX MONTHS)
     Route: 065
  5. ZANTAC [Concomitant]
     Indication: PRODUCT USED FOR UNKNOWN INDICATION
     Dosage: 150 MG, 1X/DAY:QD
     Route: 048
  6. ZYRTEC [Concomitant]
     Indication: PRODUCT USED FOR UNKNOWN INDICATION
     Dosage: 10 MG, 1X/DAY:QD
     Route: 048
  7. LUTERA [Concomitant]
     Indication: PRODUCT USED FOR UNKNOWN INDICATION
     Dosage: UNK, (0.1 TO 20 MCG) 1X/DAY:QD
     Route: 065

REACTIONS (1)
  - Serum ferritin increased [Unknown]
